FAERS Safety Report 25717663 (Version 1)
Quarter: 2025Q3

REPORT INFORMATION
  Report Type: Spontaneous
  Country: US (occurrence: US)
  Receive Date: 20250822
  Receipt Date: 20250822
  Transmission Date: 20251020
  Serious: Yes (Other)
  Sender: TAKEDA
  Company Number: US-TAKEDA-2025TUS073081

PATIENT
  Sex: Female
  Weight: 73 kg

DRUGS (6)
  1. MOTEGRITY [Suspect]
     Active Substance: PRUCALOPRIDE SUCCINATE
     Indication: Constipation
     Dosage: 2 MILLIGRAM, QD
     Dates: start: 2024
  2. DEXILANT [Suspect]
     Active Substance: DEXLANSOPRAZOLE
     Indication: Ulcer
     Dosage: 60 MILLIGRAM, QD
     Dates: start: 2024
  3. AMITIZA [Suspect]
     Active Substance: LUBIPROSTONE
     Indication: Constipation
     Dosage: UNK UNK, QD
  4. Prunelax [Concomitant]
     Indication: Constipation
  5. MIRALAX [Concomitant]
     Active Substance: POLYETHYLENE GLYCOL 3350
     Indication: Constipation
  6. ENEMA (SODIUM PHOSPHATE, DIBASIC\SODIUM PHOSPHATE, MONOBASIC) [Concomitant]
     Active Substance: SODIUM PHOSPHATE, DIBASIC\SODIUM PHOSPHATE, MONOBASIC
     Indication: Constipation

REACTIONS (7)
  - Shock [Unknown]
  - Peripheral nerve injury [Unknown]
  - Inappropriate schedule of product administration [Unknown]
  - Haemorrhage [Unknown]
  - Hand deformity [Unknown]
  - Product packaging issue [Unknown]
  - Drug ineffective [Unknown]
